FAERS Safety Report 8250447-0 (Version None)
Quarter: 2012Q1

REPORT INFORMATION
  Report Type: 
  Country: None (occurrence: None)
  Receive Date: 20120328
  Receipt Date: 20120312
  Transmission Date: 20120608
  Serious: Yes (Hospitalization, Other)
  Sender: FDA-Public Use
  Company Number: 2012MA003447

PATIENT
  Sex: Female
  Weight: 1.7 kg

DRUGS (1)
  1. FEVERALL [Suspect]
     Dosage: 24 G; TRPL
     Route: 064

REACTIONS (5)
  - MATERNAL DRUGS AFFECTING FOETUS [None]
  - JAUNDICE NEONATAL [None]
  - NEONATAL RESPIRATORY DISTRESS SYNDROME [None]
  - CAESAREAN SECTION [None]
  - PREMATURE BABY [None]
